FAERS Safety Report 12830995 (Version 2)
Quarter: 2017Q1

REPORT INFORMATION
  Report Type: Spontaneous
  Country: US (occurrence: US)
  Receive Date: 20161007
  Receipt Date: 20170111
  Transmission Date: 20170428
  Serious: Yes (Other)
  Sender: FDA-Public Use
  Company Number: US-ARBOR PHARMACEUTICALS, LLC-US-2015ARB002034

PATIENT

DRUGS (3)
  1. EVEKEO [Suspect]
     Active Substance: AMPHETAMINE SULFATE
     Indication: ATTENTION DEFICIT/HYPERACTIVITY DISORDER
     Dosage: 5 MG, ONCE DAILY
     Route: 048
     Dates: start: 201510, end: 201510
  2. EVEKEO [Suspect]
     Active Substance: AMPHETAMINE SULFATE
     Dosage: HALF TABLET TWICE A DAY
     Route: 048
     Dates: start: 201510, end: 201510
  3. EVEKEO [Suspect]
     Active Substance: AMPHETAMINE SULFATE
     Dosage: 5 MG, BID
     Route: 048
     Dates: start: 201510, end: 201510

REACTIONS (5)
  - Aggression [Not Recovered/Not Resolved]
  - Product quality issue [Unknown]
  - Drug effect decreased [Not Recovered/Not Resolved]
  - Drug ineffective [Unknown]
  - Physical assault [Unknown]

NARRATIVE: CASE EVENT DATE: 201510
